FAERS Safety Report 4667836-3 (Version None)
Quarter: 2005Q2

REPORT INFORMATION
  Report Type: 
  Country: None (occurrence: None)
  Receive Date: 20050520
  Receipt Date: 20050505
  Transmission Date: 20051028
  Serious: Yes (Life-Threatening, Hospitalization)
  Sender: FDA-Public Use
  Company Number: US-BRISTOL-MYERS SQUIBB COMPANY-12957999

PATIENT
  Age: 72 Year
  Sex: Male

DRUGS (9)
  1. CETUXIMAB [Suspect]
     Indication: NON-SMALL CELL LUNG CANCER
     Route: 042
     Dates: start: 20050504, end: 20050504
  2. DIPHENHYDRAMINE HCL [Concomitant]
     Indication: PREMEDICATION
     Route: 042
     Dates: start: 20050504
  3. ALBUTEROL [Concomitant]
     Indication: EMPHYSEMA
     Dosage: 2 PUFFS PRN.
     Route: 055
     Dates: start: 19960101
  4. ASPIRIN [Concomitant]
     Indication: PROPHYLAXIS
     Route: 048
     Dates: start: 20020101
  5. COMBIVENT [Concomitant]
     Indication: EMPHYSEMA
     Dosage: 2 PUFFS PRN.
     Route: 055
     Dates: start: 19960101
  6. FLUNISOLIDE [Concomitant]
     Indication: EMPHYSEMA
     Dosage: 2 PUFFS PRN.
     Route: 055
     Dates: start: 19960101
  7. NIFEDIPINE [Concomitant]
     Indication: HYPERTENSION
     Route: 048
     Dates: start: 20020101
  8. OMEPRAZOLE [Concomitant]
     Indication: DRUG USE FOR UNKNOWN INDICATION
     Route: 048
     Dates: start: 20020101
  9. SIMVASTATIN [Concomitant]
     Indication: HYPERLIPIDAEMIA
     Route: 048
     Dates: start: 20020101

REACTIONS (2)
  - INFUSION RELATED REACTION [None]
  - RESPIRATORY FAILURE [None]
